FAERS Safety Report 8220684-X (Version None)
Quarter: 2012Q1

REPORT INFORMATION
  Report Type: 
  Country: None (occurrence: None)
  Receive Date: 20120320
  Receipt Date: 20120307
  Transmission Date: 20120608
  Serious: Yes (Other)
  Sender: FDA-Public Use
  Company Number: HN-ELI_LILLY_AND_COMPANY-HN201203003107

PATIENT
  Age: 36 Year
  Sex: Female

DRUGS (1)
  1. DULOXETINE HYDROCHLORIDE [Suspect]
     Indication: FIBROMYALGIA
     Dosage: UNK, UNKNOWN

REACTIONS (1)
  - GINGIVITIS [None]
